FAERS Safety Report 24418644 (Version 1)
Quarter: 2024Q4

REPORT INFORMATION
  Report Type: Report from Study
  Country: US (occurrence: US)
  Receive Date: 20241009
  Receipt Date: 20241009
  Transmission Date: 20250115
  Serious: Yes (Other)
  Sender: UCB
  Company Number: US-UCBSA-2024050940

PATIENT
  Age: 22 Year
  Sex: Female
  Weight: 63.5 kg

DRUGS (1)
  1. FINTEPLA [Suspect]
     Active Substance: FENFLURAMINE
     Indication: Lennox-Gastaut syndrome
     Dosage: 26.4 MILLIGRAM PER DAY
     Dates: start: 202210

REACTIONS (4)
  - Tricuspid valve incompetence [Unknown]
  - Heart valve incompetence [Unknown]
  - Mitral valve incompetence [Unknown]
  - Overdose [Unknown]

NARRATIVE: CASE EVENT DATE: 20221001
